FAERS Safety Report 9543531 (Version 1)
Quarter: 2013Q2

REPORT INFORMATION
  Report Type: Spontaneous
  Country: US (occurrence: None)
  Receive Date: 20130531
  Receipt Date: 20130531
  Transmission Date: 20140414
  Serious: Yes (Hospitalization, Other)
  Sender: FDA-Public Use
  Company Number: KV201300030

PATIENT
  Sex: Female

DRUGS (1)
  1. MAKENA [Suspect]
     Indication: PREMATURE DELIVERY
     Dosage: 250MG, ONCE WEEKY, INTRAMUSCULAR

REACTIONS (2)
  - Premature labour [None]
  - Premature delivery [None]
